FAERS Safety Report 7416159-8 (Version None)
Quarter: 2011Q2

REPORT INFORMATION
  Report Type: 
  Country: None (occurrence: None)
  Receive Date: 20110414
  Receipt Date: 20110317
  Transmission Date: 20111010
  Serious: No
  Sender: FDA-Public Use
  Company Number: US-B.I. PHARMACEUTICALS,INC./RIDGEFIELD-2011-BP-08543BP

PATIENT
  Sex: Male

DRUGS (7)
  1. ATENOLOL [Concomitant]
     Indication: HYPERTENSION
  2. HYDROCHLOROTHIAZIDE [Concomitant]
     Indication: HYPERTENSION
  3. CLARITIN [Concomitant]
     Indication: NASAL CONGESTION
  4. DILTIAZEM HCL [Concomitant]
     Indication: HYPERTENSION
  5. ZYRTEC [Concomitant]
     Indication: NASAL CONGESTION
  6. PRADAXA [Suspect]
     Indication: ATRIAL FIBRILLATION
     Dosage: 150 MG
     Route: 048
     Dates: start: 20110101
  7. LISINOPRIL [Concomitant]
     Indication: HYPERTENSION

REACTIONS (3)
  - FREQUENT BOWEL MOVEMENTS [None]
  - FLATULENCE [None]
  - PRURITUS [None]
